FAERS Safety Report 9486810 (Version 1)
Quarter: 2013Q3

REPORT INFORMATION
  Report Type: Spontaneous
  Country: JP (occurrence: JP)
  Receive Date: 20130829
  Receipt Date: 20130829
  Transmission Date: 20140515
  Serious: Yes (Other)
  Sender: FDA-Public Use
  Company Number: JP-PFIZER INC-2013246231

PATIENT
  Age: 10 Year
  Sex: Female

DRUGS (1)
  1. ETHOSUXIMIDE [Suspect]
     Dosage: UNK
     Route: 048

REACTIONS (5)
  - Lymphadenopathy [Unknown]
  - Toxic epidermal necrolysis [Unknown]
  - Generalised erythema [Unknown]
  - Complement factor decreased [Unknown]
  - Antinuclear antibody positive [Unknown]
